FAERS Safety Report 10239006 (Version 1)
Quarter: 2014Q2

REPORT INFORMATION
  Report Type: Spontaneous
  Country: US (occurrence: None)
  Receive Date: 20140613
  Receipt Date: 20140613
  Transmission Date: 20141212
  Serious: Yes (Disabling)
  Sender: FDA-Public Use
  Company Number: None

PATIENT
  Age: 44 Year
  Sex: Female
  Weight: 55.34 kg

DRUGS (1)
  1. ISOPROPYL ALCOHOL [Suspect]
     Indication: EAR INFECTION
     Dates: start: 20140612, end: 20140612

REACTIONS (3)
  - Chemical injury [None]
  - Product quality issue [None]
  - Expired product administered [None]
